FAERS Safety Report 25664308 (Version 1)
Quarter: 2025Q3

REPORT INFORMATION
  Report Type: Other
  Country: EU (occurrence: EU)
  Receive Date: 20250811
  Receipt Date: 20250811
  Transmission Date: 20251021
  Serious: Yes (Hospitalization, Disabling)
  Sender: ZYDUS PHARM
  Company Number: None

PATIENT

DRUGS (1)
  1. BACLOFEN [Suspect]
     Active Substance: BACLOFEN
     Indication: Glioma
     Route: 048
     Dates: start: 19871030, end: 20241017

REACTIONS (4)
  - Paralysis [Recovering/Resolving]
  - Intestinal obstruction [Recovered/Resolved]
  - Urinary retention [Recovered/Resolved]
  - Myalgia [Not Recovered/Not Resolved]

NARRATIVE: CASE EVENT DATE: 19870101
